FAERS Safety Report 7315962-2 (Version None)
Quarter: 2011Q1

REPORT INFORMATION
  Report Type: 
  Country: None (occurrence: None)
  Receive Date: 20110225
  Receipt Date: 20110217
  Transmission Date: 20110831
  Serious: Yes (Hospitalization, Other)
  Sender: FDA-Public Use
  Company Number: US-AMGEN-USASP2011009641

PATIENT
  Age: 59 Year
  Sex: Male

DRUGS (1)
  1. ENBREL [Suspect]
     Indication: RHEUMATOID ARTHRITIS
     Dosage: 50 MG, 2 TIMES/WK
     Dates: start: 20090101

REACTIONS (6)
  - MALIGNANT MELANOMA [None]
  - EXOSTOSIS [None]
  - SPINAL FUSION SURGERY [None]
  - ILEUS [None]
  - PROCEDURAL COMPLICATION [None]
  - DYSPHAGIA [None]
